FAERS Safety Report 6599392-7 (Version None)
Quarter: 2010Q1

REPORT INFORMATION
  Report Type: 
  Country: None (occurrence: None)
  Receive Date: 20100216
  Receipt Date: 20100201
  Transmission Date: 20100710
  Serious: Yes (Hospitalization)
  Sender: FDA-Public Use
  Company Number: WAES 1002USA01034

PATIENT
  Age: 61 Year
  Sex: Male

DRUGS (4)
  1. ZETIA [Suspect]
     Indication: HYPERCHOLESTEROLAEMIA
     Dosage: 10 MG/DAILY, PO
     Route: 048
     Dates: start: 20090622, end: 20090913
  2. AMLODIPINE BESYLATE [Concomitant]
  3. BEZAFIBRATE [Concomitant]
  4. GLIMEPIRIDIE [Concomitant]

REACTIONS (2)
  - BRAIN STEM INFARCTION [None]
  - LACUNAR INFARCTION [None]
